FAERS Safety Report 25419098 (Version 1)
Quarter: 2025Q2

REPORT INFORMATION
  Report Type: Spontaneous
  Country: US (occurrence: US)
  Receive Date: 20250610
  Receipt Date: 20250610
  Transmission Date: 20250716
  Serious: Yes (Death)
  Sender: BAUSCH AND LOMB
  Company Number: US-BAUSCH-BL-2025-007028

PATIENT
  Age: 81 Year
  Sex: Male

DRUGS (4)
  1. FLUCYTOSINE [Suspect]
     Active Substance: FLUCYTOSINE
     Indication: Acanthamoeba infection
     Route: 065
  2. VORICONAZOLE [Suspect]
     Active Substance: VORICONAZOLE
     Indication: Acanthamoeba infection
     Route: 065
  3. MILTEFOSINE [Suspect]
     Active Substance: MILTEFOSINE
     Indication: Acanthamoeba infection
     Route: 065
  4. SULFADIAZINE [Suspect]
     Active Substance: SULFADIAZINE
     Indication: Acanthamoeba infection
     Dosage: DISCONTINUED AFTER 1 WEEK DUE TO SEVERE DIARRHOEA
     Route: 065

REACTIONS (1)
  - Renal failure [Fatal]
